FAERS Safety Report 25556675 (Version 1)
Quarter: 2025Q3

REPORT INFORMATION
  Report Type: Spontaneous
  Country: US (occurrence: US)
  Receive Date: 20250715
  Receipt Date: 20250715
  Transmission Date: 20251020
  Serious: No
  Sender: NOVO NORDISK
  Company Number: US-NOVOPROD-1370329

PATIENT
  Age: 76 Year
  Sex: Male

DRUGS (1)
  1. OZEMPIC [Suspect]
     Active Substance: SEMAGLUTIDE
     Indication: Weight control
     Dosage: 2 MG QW
     Route: 058
     Dates: start: 202310, end: 20241014

REACTIONS (5)
  - Visual impairment [Not Recovered/Not Resolved]
  - Product use complaint [Not Recovered/Not Resolved]
  - Wrong technique in product usage process [Unknown]
  - Off label use [Unknown]
  - Incorrect dose administered [Unknown]

NARRATIVE: CASE EVENT DATE: 20231001
